FAERS Safety Report 16850145 (Version 1)
Quarter: 2019Q3

REPORT INFORMATION
  Report Type: Spontaneous
  Country: AU (occurrence: AU)
  Receive Date: 20190925
  Receipt Date: 20190925
  Transmission Date: 20191005
  Serious: No
  Sender: FDA-Public Use
  Company Number: AU-BEH-2019106953

PATIENT
  Age: 52 Year
  Sex: Female

DRUGS (1)
  1. PRIVIGEN [Suspect]
     Active Substance: HUMAN IMMUNOGLOBULIN G
     Indication: PLASMA CELL MYELOMA
     Dosage: 30 GRAM, QMT
     Route: 065
     Dates: start: 20190904, end: 20190904

REACTIONS (2)
  - Unevaluable event [Unknown]
  - Pyrexia [Unknown]

NARRATIVE: CASE EVENT DATE: 20190904
